FAERS Safety Report 10647833 (Version 4)
Quarter: 2015Q1

REPORT INFORMATION
  Report Type: Report from Study
  Country: FI (occurrence: FI)
  Receive Date: 20141212
  Receipt Date: 20150204
  Transmission Date: 20150720
  Serious: Yes (Death, Other)
  Sender: FDA-Public Use
  Company Number: FI-ROCHE-1505984

PATIENT
  Age: 19 Year
  Sex: Female

DRUGS (6)
  1. PACLITAXEL. [Concomitant]
     Active Substance: PACLITAXEL
     Indication: BORDERLINE OVARIAN TUMOUR
     Dosage: 6 TREATMENT CYCLES
     Route: 042
     Dates: end: 20141106
  2. CARBOPLATIN. [Concomitant]
     Active Substance: CARBOPLATIN
     Indication: BORDERLINE OVARIAN TUMOUR
     Dosage: 6 TREATMENT CYCLES
     Route: 042
     Dates: end: 20141106
  3. AVASTIN [Suspect]
     Active Substance: BEVACIZUMAB
     Indication: BORDERLINE OVARIAN TUMOUR
     Dosage: =435MG?DATE OF LAST DOSE OF AVASTIN ADMINISTERED PRIOR TO EVENT: 27/NOV/2014
     Route: 042
     Dates: start: 20140807
  4. AVASTIN [Suspect]
     Active Substance: BEVACIZUMAB
     Indication: SARCOMA
  5. PACLITAXEL. [Concomitant]
     Active Substance: PACLITAXEL
     Indication: SARCOMA
  6. CARBOPLATIN. [Concomitant]
     Active Substance: CARBOPLATIN
     Indication: SARCOMA

REACTIONS (2)
  - Disease progression [Fatal]
  - Retroperitoneal haematoma [Unknown]

NARRATIVE: CASE EVENT DATE: 201411
